FAERS Safety Report 9384630 (Version 1)
Quarter: 2013Q3

REPORT INFORMATION
  Report Type: Spontaneous
  Country: BR (occurrence: BR)
  Receive Date: 20130705
  Receipt Date: 20130705
  Transmission Date: 20140515
  Serious: Yes (Other)
  Sender: FDA-Public Use
  Company Number: BR-SANOFI-AVENTIS-2013SA066858

PATIENT
  Sex: 0

DRUGS (2)
  1. LANTUS [Suspect]
     Indication: DIABETES MELLITUS
     Route: 058
  2. INSULIN PEN NOS [Suspect]
     Indication: DEVICE THERAPY

REACTIONS (2)
  - Blood culture positive [Unknown]
  - Renal disorder [Unknown]
